FAERS Safety Report 6906270-X (Version None)
Quarter: 2010Q3

REPORT INFORMATION
  Report Type: 
  Country: None (occurrence: None)
  Receive Date: 20100804
  Receipt Date: 20100624
  Transmission Date: 20110219
  Serious: Yes (Death, Other)
  Sender: FDA-Public Use
  Company Number: US-BAXTER-2010BH007836

PATIENT
  Age: 76 Year
  Sex: Female

DRUGS (3)
  1. HEPARIN SODIUM [Suspect]
     Indication: CORONARY ARTERY BYPASS
     Route: 065
     Dates: start: 20071030, end: 20071101
  2. HEPARIN SODIUM [Suspect]
     Indication: AORTIC VALVE REPLACEMENT
     Route: 065
     Dates: start: 20071030, end: 20071101
  3. WARFARIN [Suspect]
     Indication: PRODUCT USED FOR UNKNOWN INDICATION
     Route: 065
     Dates: start: 20071201

REACTIONS (17)
  - ASTHENIA [None]
  - BACTERAEMIA [None]
  - CARDIAC FAILURE CONGESTIVE [None]
  - CEREBROVASCULAR ACCIDENT [None]
  - COAGULOPATHY [None]
  - ENDOCARDITIS [None]
  - ENTEROCOLITIS INFECTIOUS [None]
  - FLUID OVERLOAD [None]
  - FUNGAEMIA [None]
  - HEPARIN-INDUCED THROMBOCYTOPENIA [None]
  - LUNG INFECTION PSEUDOMONAL [None]
  - PLEURAL EFFUSION [None]
  - RENAL FAILURE [None]
  - RENAL FAILURE ACUTE [None]
  - RESPIRATORY DISTRESS [None]
  - RESPIRATORY FAILURE [None]
  - THROMBOCYTOPENIA [None]
